FAERS Safety Report 9770941 (Version 1)
Quarter: 2013Q4

REPORT INFORMATION
  Report Type: Spontaneous
  Country: US (occurrence: US)
  Receive Date: 20131218
  Receipt Date: 20131218
  Transmission Date: 20140711
  Serious: No
  Sender: FDA-Public Use
  Company Number: US-PFIZER INC-2013359153

PATIENT
  Age: 76 Year
  Sex: Female
  Weight: 47.62 kg

DRUGS (5)
  1. PREMARIN [Suspect]
     Indication: OOPHORECTOMY
     Dosage: 6.25 MG, UNK
     Route: 048
     Dates: start: 1984
  2. PREMARIN [Suspect]
     Indication: HYSTERECTOMY
     Dosage: 4.5 MG, UNK
     Route: 048
  3. PREMARIN [Suspect]
     Indication: POSTOPERATIVE CARE
     Dosage: 0.3 MG, 1X/DAY
     Route: 048
     Dates: end: 201311
  4. VITAMIN B2 [Concomitant]
     Dosage: UNK
  5. OMEGA 3-6-9 COMPLEX [Concomitant]
     Dosage: UNK

REACTIONS (4)
  - Breast discomfort [Unknown]
  - Blood cholesterol increased [Unknown]
  - Blood triglycerides increased [Unknown]
  - Asthenia [Unknown]
